FAERS Safety Report 5513064-9 (Version None)
Quarter: 2007Q4

REPORT INFORMATION
  Report Type: 
  Country: None (occurrence: None)
  Receive Date: 20071112
  Receipt Date: 20071001
  Transmission Date: 20080405
  Serious: No
  Sender: FDA-Public Use
  Company Number: US-ABBOTT-07P-163-0418993-00

PATIENT
  Sex: Male
  Weight: 97.61 kg

DRUGS (6)
  1. TRICOR [Suspect]
     Indication: HIGH DENSITY LIPOPROTEIN DECREASED
     Route: 048
     Dates: start: 20070601
  2. TRICOR [Suspect]
     Indication: BLOOD TRIGLYCERIDES INCREASED
  3. ROSUVASTATIN [Concomitant]
     Indication: BLOOD TRIGLYCERIDES
     Route: 048
     Dates: start: 19920101
  4. ACETYLSALICYLIC ACID SRT [Concomitant]
     Indication: CARDIAC DISORDER
     Route: 048
     Dates: start: 19920101
  5. ESOMEPRAZOLE MAGNESIUM [Concomitant]
     Indication: GASTRIC DISORDER
     Route: 048
     Dates: start: 20050101
  6. VALSARTAN [Concomitant]
     Indication: CARDIAC DISORDER
     Route: 048
     Dates: start: 19990101

REACTIONS (1)
  - RASH PAPULOSQUAMOUS [None]
